FAERS Safety Report 8791018 (Version 3)
Quarter: 2012Q4

REPORT INFORMATION
  Report Type: Spontaneous
  Country: US (occurrence: None)
  Receive Date: 20120907
  Receipt Date: 20121211
  Transmission Date: 20130627
  Serious: Yes (Death)
  Sender: FDA-Public Use
  Company Number: 2012-0701

PATIENT
  Age: 77 Year
  Sex: Male
  Weight: 79.38 kg

DRUGS (6)
  1. KYPROLIS [Suspect]
     Indication: MULTIPLE MYELOMA
     Route: 042
     Dates: end: 20120810
  2. SOTALOL (SOTALOL) (SOTALOL) [Concomitant]
  3. GLIPIZIDE ER(GLIPIZIDE) (GLIPIZIDE) [Concomitant]
  4. PRILOSEC (OMEPRAZOLE) (OMEPRAZOLE) [Concomitant]
  5. FLUCONAZOLE (FLUCONAZOLE) (FLUCONAZOLE) [Concomitant]
  6. BACTRIM DS(SULFAMETHOXAZOLE) (SULFAMETHOXAZOLE) [Concomitant]

REACTIONS (3)
  - Haemoglobin decreased [None]
  - Platelet count decreased [None]
  - Oxygen saturation decreased [None]
